FAERS Safety Report 25527560 (Version 2)
Quarter: 2025Q3

REPORT INFORMATION
  Report Type: Spontaneous
  Country: EU (occurrence: EU)
  Receive Date: 20250708
  Receipt Date: 20250721
  Transmission Date: 20251020
  Serious: No
  Sender: ABBVIE
  Company Number: EU-IPSEN Group, Research and Development-2025-14746

PATIENT
  Age: 4 Year
  Sex: Male

DRUGS (1)
  1. BOTULINUM TOXIN TYPE A [Suspect]
     Active Substance: BOTULINUM TOXIN TYPE A
     Indication: Torticollis
     Route: 065

REACTIONS (2)
  - Product use in unapproved indication [Unknown]
  - Drug ineffective [Unknown]
